FAERS Safety Report 14009938 (Version 3)
Quarter: 2018Q4

REPORT INFORMATION
  Report Type: Spontaneous
  Country: US (occurrence: US)
  Receive Date: 20170925
  Receipt Date: 20181101
  Transmission Date: 20190204
  Serious: Yes (Hospitalization)
  Sender: FDA-Public Use
  Company Number: US-TEVA-809378USA

PATIENT
  Age: 61 Year
  Sex: Female
  Weight: 80.81 kg

DRUGS (1)
  1. SYNRIBO [Suspect]
     Active Substance: OMACETAXINE MEPESUCCINATE
     Indication: PRODUCT USED FOR UNKNOWN INDICATION
     Dosage: HOME ADMINISTRATION, TWICE DAILY DAYS ONE THROUGH FIVE EVERY 28 DAYS
     Route: 065
     Dates: start: 20170627

REACTIONS (4)
  - Cardiac disorder [Unknown]
  - Ear infection [Not Recovered/Not Resolved]
  - Rhinalgia [Unknown]
  - Dyspnoea [Unknown]

NARRATIVE: CASE EVENT DATE: 201709
